FAERS Safety Report 11772351 (Version 1)
Quarter: 2015Q4

REPORT INFORMATION
  Report Type: Report from Study
  Country: FR (occurrence: FR)
  Receive Date: 20151124
  Receipt Date: 20151124
  Transmission Date: 20160304
  Serious: Yes (Other)
  Sender: FDA-Public Use
  Company Number: FR-AMGEN-FRASL2015123009

PATIENT
  Age: 55 Year
  Sex: Male

DRUGS (1)
  1. XGEVA [Suspect]
     Active Substance: DENOSUMAB
     Indication: PROPHYLAXIS
     Dosage: 150 UNK, Q4WK
     Route: 058
     Dates: start: 201304, end: 201508

REACTIONS (3)
  - Hypercalcaemia [Recovered/Resolved]
  - Dehydration [Unknown]
  - Treatment failure [Unknown]

NARRATIVE: CASE EVENT DATE: 201508
